FAERS Safety Report 10367796 (Version 1)
Quarter: 2014Q3

REPORT INFORMATION
  Report Type: Spontaneous
  Country: FR (occurrence: FR)
  Receive Date: 20140807
  Receipt Date: 20140807
  Transmission Date: 20150326
  Serious: Yes (Hospitalization)
  Sender: FDA-Public Use
  Company Number: FR-MERCK-1407FRA014395

PATIENT
  Age: 70 Year
  Sex: Female

DRUGS (9)
  1. EPIRUBICIN HYDROCHLORIDE. [Suspect]
     Active Substance: EPIRUBICIN HYDROCHLORIDE
     Indication: BREAST CANCER
     Dosage: UNK
     Route: 042
     Dates: start: 20140617, end: 20140617
  2. EMEND [Suspect]
     Active Substance: APREPITANT
     Dosage: 80 MG, QD
     Dates: start: 20140618, end: 20140619
  3. SIMVASTATIN. [Suspect]
     Active Substance: SIMVASTATIN
     Dosage: UNK
     Route: 048
     Dates: end: 20140723
  4. FLUOROURACIL/FLUORURACIL (+) FOLIC ACID [Suspect]
     Active Substance: INVESTIGATIONAL PRODUCT
     Indication: BREAST CANCER
     Dosage: UNK
     Route: 042
     Dates: start: 20140617, end: 20140617
  5. TERCIAN [Suspect]
     Active Substance: CYAMEMAZINE
     Route: 048
  6. EMEND [Suspect]
     Active Substance: APREPITANT
     Indication: PREMEDICATION
     Dosage: 125 MG, ONCE
     Route: 048
     Dates: start: 20140617, end: 20140617
  7. ZOPHREN (ONDANSETRON HYDROCHLORIDE) [Suspect]
     Active Substance: ONDANSETRON HYDROCHLORIDE
     Indication: PREMEDICATION
     Dosage: UNK
     Route: 048
     Dates: start: 20140617, end: 20140617
  8. HYDROCHLOROTHIAZIDE\VALSARTAN [Suspect]
     Active Substance: HYDROCHLOROTHIAZIDE\VALSARTAN
     Dosage: UNK
     Route: 048
  9. ENDOXAN [Suspect]
     Active Substance: CYCLOPHOSPHAMIDE
     Indication: BREAST CANCER
     Dosage: UNK
     Route: 042
     Dates: start: 20140617, end: 20140617

REACTIONS (2)
  - Hepatocellular injury [Not Recovered/Not Resolved]
  - Cholestasis [Not Recovered/Not Resolved]

NARRATIVE: CASE EVENT DATE: 20140707
